FAERS Safety Report 10693781 (Version 4)
Quarter: 2015Q4

REPORT INFORMATION
  Report Type: Spontaneous
  Country: US (occurrence: US)
  Receive Date: 20150106
  Receipt Date: 20151109
  Transmission Date: 20160304
  Serious: Yes (Hospitalization, Other)
  Sender: FDA-Public Use
  Company Number: US-BAYER-2015-001457

PATIENT
  Age: 26 Year
  Sex: Female
  Weight: 92.97 kg

DRUGS (4)
  1. MIRENA [Suspect]
     Active Substance: LEVONORGESTREL
     Indication: CONTRACEPTION
  2. MIRENA [Suspect]
     Active Substance: LEVONORGESTREL
     Indication: MENORRHAGIA
     Dosage: 20 MCG/24HR, CONT
     Route: 015
     Dates: start: 200307, end: 20070827
  3. LISINOPRIL. [Concomitant]
     Active Substance: LISINOPRIL
     Indication: HYPERTENSION
     Dosage: UNK
     Dates: start: 2004
  4. HYDROCHLOROTHIAZIDE. [Concomitant]
     Active Substance: HYDROCHLOROTHIAZIDE
     Indication: HYPERTENSION
     Dosage: UNK
     Dates: start: 2005

REACTIONS (13)
  - Infection [None]
  - Depression [None]
  - Device issue [None]
  - Emotional distress [None]
  - Embedded device [None]
  - Antisocial behaviour [None]
  - Device dislocation [None]
  - Pain [None]
  - Genital haemorrhage [None]
  - Anxiety [None]
  - Panic attack [None]
  - Anger [None]
  - Injury [None]

NARRATIVE: CASE EVENT DATE: 200312
